FAERS Safety Report 6221261-2 (Version None)
Quarter: 2009Q2

REPORT INFORMATION
  Report Type: 
  Country: None (occurrence: None)
  Receive Date: 20090610
  Receipt Date: 20090605
  Transmission Date: 20091009
  Serious: Yes (Hospitalization, Other)
  Sender: FDA-Public Use
  Company Number: US-MERCK-0805USA02784

PATIENT
  Age: 71 Year
  Sex: Female
  Weight: 77 kg

DRUGS (2)
  1. FOSAMAX [Suspect]
     Indication: OSTEOPOROSIS
     Route: 048
     Dates: start: 20000503, end: 20001101
  2. FOSAMAX [Suspect]
     Route: 048
     Dates: start: 20010205, end: 20050701

REACTIONS (18)
  - ALVEOLAR OSTEITIS [None]
  - BACK DISORDER [None]
  - BACK PAIN [None]
  - CHEST PAIN [None]
  - DEEP VEIN THROMBOSIS [None]
  - DENTAL CARIES [None]
  - DYSPNOEA [None]
  - EXTRASYSTOLES [None]
  - FALL [None]
  - FATIGUE [None]
  - INTERVERTEBRAL DISC PROTRUSION [None]
  - OSTEONECROSIS [None]
  - PNEUMONIA ASPIRATION [None]
  - ROTATOR CUFF SYNDROME [None]
  - SLEEP APNOEA SYNDROME [None]
  - TOOTH DISORDER [None]
  - TOOTH FRACTURE [None]
  - URINARY INCONTINENCE [None]
